FAERS Safety Report 6383259-3 (Version None)
Quarter: 2009Q3

REPORT INFORMATION
  Report Type: 
  Country: None (occurrence: None)
  Receive Date: 20090929
  Receipt Date: 20090914
  Transmission Date: 20100115
  Serious: Yes (Other)
  Sender: FDA-Public Use
  Company Number: CIP09002627

PATIENT
  Age: 63 Year
  Sex: Female
  Weight: 68 kg

DRUGS (12)
  1. DIDRONEL [Suspect]
     Indication: OSTEOPOROSIS
     Dosage: 1 DF DAILY FOR 14 DAYS EVERY 2 MONTHS, ORAL
     Route: 048
     Dates: end: 19931001
  2. ACTONEL [Suspect]
     Dosage: 35 MG ONCE WEEKLY, ORAL
     Route: 048
     Dates: start: 20031223, end: 20050401
  3. FOSAMAX [Concomitant]
     Indication: OSTEOPOROSIS
     Dosage: 10 MG ONCE DAILY, ORAL
     Route: 048
     Dates: start: 19961001, end: 20031101
  4. LASIX [Concomitant]
  5. TIGAN [Concomitant]
  6. HYDROCHLOROTHIAZIDE [Concomitant]
  7. SELDANE [Concomitant]
  8. ORNADE /00014501/ (CHLORPHENAMINE MALEATE, PHENYLPROPANOLAMINE HYDROCH [Concomitant]
  9. CLINORIL [Concomitant]
  10. LOVASTATIN [Concomitant]
  11. POTASSIUM CHLORIDE [Concomitant]
  12. OS-CAL /00188401/ (CALCIUM, ERGOCALCIFEROL) [Concomitant]

REACTIONS (22)
  - BRACHIAL PLEXOPATHY [None]
  - DENTAL CARIES [None]
  - FISTULA DISCHARGE [None]
  - GINGIVAL SWELLING [None]
  - GINGIVITIS [None]
  - HAEMATOMA [None]
  - JAW DISORDER [None]
  - LEUKOPLAKIA ORAL [None]
  - LOOSE TOOTH [None]
  - ORAL CAVITY FISTULA [None]
  - ORAL DISORDER [None]
  - ORAL PAIN [None]
  - OSTEONECROSIS [None]
  - PERIPHERAL NERVE INJURY [None]
  - RADIAL NERVE PALSY [None]
  - RENAL ARTERY STENOSIS [None]
  - RESORPTION BONE INCREASED [None]
  - STOMATITIS [None]
  - TOOTH ABSCESS [None]
  - TOOTH DISORDER [None]
  - TOOTHACHE [None]
  - VASCULAR PSEUDOANEURYSM [None]
